FAERS Safety Report 25671525 (Version 2)
Quarter: 2025Q3

REPORT INFORMATION
  Report Type: Spontaneous
  Country: TR (occurrence: TR)
  Receive Date: 20250812
  Receipt Date: 20250828
  Transmission Date: 20251020
  Serious: Yes (Hospitalization)
  Sender: AMGEN
  Company Number: TR-AMGEN-TURSP2025154606

PATIENT
  Age: 86 Year
  Sex: Male

DRUGS (14)
  1. PROLIA [Suspect]
     Active Substance: DENOSUMAB
     Indication: Osteoporosis
     Route: 065
  2. HYDROCHLOROTHIAZIDE\IRBESARTAN [Concomitant]
     Active Substance: HYDROCHLOROTHIAZIDE\IRBESARTAN
  3. GINKGO [Concomitant]
     Active Substance: GINKGO
  4. DONEPEZIL [Concomitant]
     Active Substance: DONEPEZIL
  5. ALPRAZOLAM [Concomitant]
     Active Substance: ALPRAZOLAM
  6. SALICYLATES NOS [Concomitant]
     Active Substance: UNSPECIFIED INGREDIENT
  7. PRAMIPEXOLE [Concomitant]
     Active Substance: PRAMIPEXOLE
  8. RASAGILINE [Concomitant]
     Active Substance: RASAGILINE
  9. OMEPRAZOLE [Concomitant]
     Active Substance: OMEPRAZOLE
  10. PROPRANOLOL [Concomitant]
     Active Substance: PROPRANOLOL HYDROCHLORIDE
  11. OLANZAPINE [Concomitant]
     Active Substance: OLANZAPINE
  12. CITALOPRAM [Concomitant]
     Active Substance: CITALOPRAM
  13. TRAMADOL [Concomitant]
     Active Substance: TRAMADOL
  14. PRIMIDONE [Concomitant]
     Active Substance: PRIMIDONE

REACTIONS (3)
  - Anticholinergic syndrome [Unknown]
  - Neuroleptic malignant syndrome [Unknown]
  - Serotonin syndrome [Unknown]
